FAERS Safety Report 5717637-X (Version None)
Quarter: 2008Q2

REPORT INFORMATION
  Report Type: 
  Country: None (occurrence: None)
  Receive Date: 20080425
  Receipt Date: 20080416
  Transmission Date: 20081010
  Serious: Yes (Other)
  Sender: FDA-Public Use
  Company Number: AT-JNJFOC-20080404905

PATIENT
  Age: 69 Year
  Sex: Female
  Weight: 61 kg

DRUGS (2)
  1. REMICADE [Suspect]
     Indication: OSTEOPOROSIS
     Route: 042
  2. PURINETHOL [Suspect]
     Indication: OSTEOPOROSIS

REACTIONS (3)
  - CARDIAC ARREST [None]
  - CARDIAC DISCOMFORT [None]
  - PULMONARY EMBOLISM [None]
